FAERS Safety Report 8155751-2 (Version None)
Quarter: 2012Q1

REPORT INFORMATION
  Report Type: 
  Country: None (occurrence: None)
  Receive Date: 20120215
  Receipt Date: 20120206
  Transmission Date: 20120608
  Serious: Yes (Death)
  Sender: FDA-Public Use
  Company Number: 2012MA001721

PATIENT
  Age: 61 Year
  Sex: Male

DRUGS (2)
  1. TRAMADOL HCL [Concomitant]
  2. MORPHINE SULFATE INJ [Suspect]
     Indication: PAIN
     Dosage: 5 MG;Q4H;SC
     Route: 058

REACTIONS (5)
  - PAIN [None]
  - CONDITION AGGRAVATED [None]
  - CARDIO-RESPIRATORY ARREST [None]
  - SOMNOLENCE [None]
  - TOXICITY TO VARIOUS AGENTS [None]
